FAERS Safety Report 11882210 (Version 3)
Quarter: 2018Q2

REPORT INFORMATION
  Report Type: Spontaneous
  Country: FR (occurrence: FR)
  Receive Date: 20151231
  Receipt Date: 20180514
  Transmission Date: 20180711
  Serious: Yes (Life-Threatening, Hospitalization, Congenital Anomaly)
  Sender: FDA-Public Use
  Company Number: FR-JNJFOC-20151219927

PATIENT
  Age: 0 Year
  Sex: Female
  Weight: .72 kg

DRUGS (5)
  1. EFFEXOR [Suspect]
     Active Substance: VENLAFAXINE HYDROCHLORIDE
     Indication: SCHIZOPHRENIA
     Route: 064
     Dates: start: 201406, end: 201501
  2. HALDOL [Suspect]
     Active Substance: HALOPERIDOL
     Indication: SCHIZOPHRENIA
     Route: 064
     Dates: start: 201406, end: 20150129
  3. ABILIFY [Suspect]
     Active Substance: ARIPIPRAZOLE
     Indication: SCHIZOPHRENIA
     Route: 064
     Dates: start: 201406, end: 20150129
  4. SERESTA [Concomitant]
     Active Substance: OXAZEPAM
     Indication: SCHIZOPHRENIA
     Route: 064
  5. HALDOL [Suspect]
     Active Substance: HALOPERIDOL
     Indication: SCHIZOPHRENIA
     Route: 064
     Dates: start: 201406, end: 20150129

REACTIONS (7)
  - Foetal arrhythmia [Unknown]
  - Foetal exposure during pregnancy [Recovered/Resolved]
  - Foetal growth restriction [Not Recovered/Not Resolved]
  - Neonatal intestinal obstruction [Recovered/Resolved]
  - Premature baby [Not Recovered/Not Resolved]
  - Bronchopulmonary dysplasia [Recovered/Resolved]
  - Deafness congenital [Unknown]

NARRATIVE: CASE EVENT DATE: 20140711
